FAERS Safety Report 16298258 (Version 3)
Quarter: 2019Q4

REPORT INFORMATION
  Report Type: Spontaneous
  Country: JP (occurrence: JP)
  Receive Date: 20190510
  Receipt Date: 20191212
  Transmission Date: 20200122
  Serious: Yes (Hospitalization, Other)
  Sender: FDA-Public Use
  Company Number: JP-BRISTOL-MYERS SQUIBB COMPANY-BMS-2019-045694

PATIENT
  Age: 70 Year
  Sex: Female

DRUGS (2)
  1. OPDIVO [Suspect]
     Active Substance: NIVOLUMAB
     Indication: PRODUCT USED FOR UNKNOWN INDICATION
     Dosage: 3 ABSENT
     Route: 041
     Dates: start: 20180620
  2. OPDIVO [Suspect]
     Active Substance: NIVOLUMAB
     Indication: NON-SMALL CELL LUNG CANCER RECURRENT
     Dosage: 3 DOSAGE FORM
     Route: 041
     Dates: start: 201605

REACTIONS (10)
  - Fall [Unknown]
  - Hypotension [Unknown]
  - Chest discomfort [Unknown]
  - Bundle branch block left [Unknown]
  - Sinus node dysfunction [Unknown]
  - Tachycardia paroxysmal [Unknown]
  - Dyspnoea exertional [Unknown]
  - Bundle branch block right [Unknown]
  - Organising pneumonia [Unknown]
  - Dizziness [Unknown]

NARRATIVE: CASE EVENT DATE: 201610
